FAERS Safety Report 10580111 (Version 1)
Quarter: 2014Q4

REPORT INFORMATION
  Report Type: Spontaneous
  Country: US (occurrence: US)
  Receive Date: 20141112
  Receipt Date: 20141112
  Transmission Date: 20150529
  Serious: No
  Sender: FDA-Public Use
  Company Number: US-UPSHER-SMITH LABORATORIES, INC.-14001640

PATIENT
  Age: 82 Year
  Sex: Female

DRUGS (6)
  1. JANTOVEN [Suspect]
     Active Substance: WARFARIN SODIUM
     Indication: VASCULAR GRAFT
     Dosage: 1 MG, QD
     Route: 048
     Dates: start: 20140628
  2. JANTOVEN [Suspect]
     Active Substance: WARFARIN SODIUM
     Dosage: 2MG (SSMTWF); 3MG TH
     Route: 048
     Dates: start: 2012, end: 20140628
  3. ASPIRIN. [Concomitant]
     Active Substance: ASPIRIN
     Dosage: 81 MG, UNK
  4. CARVEDILOL. [Concomitant]
     Active Substance: CARVEDILOL
     Indication: HYPERTENSION
     Dosage: UNK
  5. CRESTOR [Concomitant]
     Active Substance: ROSUVASTATIN CALCIUM
     Indication: BLOOD CHOLESTEROL INCREASED
     Dosage: UNK
  6. DILTIAZEM [Concomitant]
     Active Substance: DILTIAZEM
     Indication: HYPERTENSION
     Dosage: UNK

REACTIONS (2)
  - Contusion [Not Recovered/Not Resolved]
  - Dizziness [Not Recovered/Not Resolved]

NARRATIVE: CASE EVENT DATE: 201204
